FAERS Safety Report 8474068-X (Version None)
Quarter: 2012Q2

REPORT INFORMATION
  Report Type: 
  Country: None (occurrence: None)
  Receive Date: 20120628
  Receipt Date: 20110523
  Transmission Date: 20120825
  Serious: Yes (Life-Threatening, Other)
  Sender: FDA-Public Use
  Company Number: US-MYLANLABS-2011S1005785

PATIENT
  Age: 53 Year
  Sex: Male

DRUGS (6)
  1. LITHIUM CARBONATE [Concomitant]
  2. RISPERDAL [Concomitant]
  3. CLONAZEPAM [Concomitant]
  4. DILANTIN [Concomitant]
  5. CLOZAPINE [Suspect]
     Indication: SCHIZOPHRENIA, PARANOID TYPE
     Dates: end: 20110407
  6. LOPRESSOR [Concomitant]

REACTIONS (3)
  - LEUKOPENIA [None]
  - AGRANULOCYTOSIS [None]
  - GRANULOCYTOPENIA [None]
